FAERS Safety Report 17599317 (Version 1)
Quarter: 2020Q1

REPORT INFORMATION
  Report Type: Report from Study
  Country: CO (occurrence: CO)
  Receive Date: 20200330
  Receipt Date: 20200330
  Transmission Date: 20200409
  Serious: Yes (Hospitalization, Other)
  Sender: FDA-Public Use
  Company Number: CO-ROCHE-2441213

PATIENT
  Sex: Female

DRUGS (2)
  1. ACTEMRA [Suspect]
     Active Substance: TOCILIZUMAB
     Indication: ARTHRITIS
     Dosage: INJECTION
     Route: 065
  2. MABTHERA [Suspect]
     Active Substance: RITUXIMAB
     Indication: RHEUMATOID ARTHRITIS
     Route: 065

REACTIONS (15)
  - Cellulitis [Recovering/Resolving]
  - Arthralgia [Unknown]
  - Discharge [Unknown]
  - Condition aggravated [Unknown]
  - Toxicity to various agents [Unknown]
  - Gait disturbance [Unknown]
  - Limb mass [Unknown]
  - Discomfort [Unknown]
  - Nasopharyngitis [Unknown]
  - Joint swelling [Unknown]
  - Inflammation [Unknown]
  - Peripheral swelling [Unknown]
  - Malaise [Recovering/Resolving]
  - Ill-defined disorder [Unknown]
  - Hypersensitivity [Recovering/Resolving]
